FAERS Safety Report 8841862 (Version 1)
Quarter: 2012Q4

REPORT INFORMATION
  Report Type: Spontaneous
  Country: US (occurrence: None)
  Receive Date: 20121015
  Receipt Date: 20121015
  Transmission Date: 20130627
  Serious: No
  Sender: FDA-Public Use
  Company Number: None

PATIENT

DRUGS (2)
  1. NITROFUR-MACR MYLAN [Suspect]
     Indication: BLADDER INFECTION
     Dosage: 100 mg 2x^s day 2x^s a day
     Dates: start: 20120926, end: 20120928
  2. NITROFUR-MACR MYLAN [Suspect]
     Indication: URINARY TRACT INFECTION
     Dosage: 100 mg 2x^s day 2x^s a day
     Dates: start: 20120926, end: 20120928

REACTIONS (9)
  - Nausea [None]
  - Chills [None]
  - Tremor [None]
  - Pyrexia [None]
  - Feeling cold [None]
  - Rash [None]
  - Eructation [None]
  - Heart rate increased [None]
  - Hypophagia [None]
